FAERS Safety Report 18282767 (Version 4)
Quarter: 2020Q4

REPORT INFORMATION
  Report Type: Spontaneous
  Country: US (occurrence: US)
  Receive Date: 20200918
  Receipt Date: 20201002
  Transmission Date: 20210113
  Serious: No
  Sender: FDA-Public Use
  Company Number: US-PFIZER INC-2020355394

PATIENT
  Age: 66 Year
  Sex: Female
  Weight: 65.77 kg

DRUGS (5)
  1. IBRANCE [Suspect]
     Active Substance: PALBOCICLIB
     Indication: BREAST CANCER METASTATIC
     Dosage: 75 MG
  2. IBRANCE [Suspect]
     Active Substance: PALBOCICLIB
     Dosage: 100 MG, ALTERNATE DAY(HAS ONLY BEEN ON 5 DOSES OF IBRANCE OF EVERY OTHER)
     Route: 048
     Dates: start: 20200916
  3. LETROZOLE. [Concomitant]
     Active Substance: LETROZOLE
     Dosage: UNK
  4. IBRANCE [Suspect]
     Active Substance: PALBOCICLIB
     Indication: MIXED HEPATOCELLULAR CHOLANGIOCARCINOMA
     Dosage: 100 MG, CYCLIC
  5. IBRANCE [Suspect]
     Active Substance: PALBOCICLIB
     Indication: METASTASES TO LIVER
     Dosage: 100 MG, CYCLIC(1 TABLET BY MOUTH DAILY)
     Route: 048
     Dates: start: 202008

REACTIONS (13)
  - Sinus disorder [Unknown]
  - Erythema [Recovering/Resolving]
  - Blister [Recovering/Resolving]
  - Blood cholesterol abnormal [Unknown]
  - Neutrophil count decreased [Not Recovered/Not Resolved]
  - Palpitations [Unknown]
  - Skin burning sensation [Recovering/Resolving]
  - White blood cell count decreased [Not Recovered/Not Resolved]
  - Skin irritation [Recovering/Resolving]
  - Poor quality sleep [Recovering/Resolving]
  - Pain of skin [Recovering/Resolving]
  - Alopecia [Not Recovered/Not Resolved]
  - Skin disorder [Recovering/Resolving]

NARRATIVE: CASE EVENT DATE: 2020
